FAERS Safety Report 17249253 (Version 3)
Quarter: 2020Q1

REPORT INFORMATION
  Report Type: Report from Study
  Country: ID (occurrence: ID)
  Receive Date: 20200108
  Receipt Date: 20200122
  Transmission Date: 20200409
  Serious: Yes (Death, Hospitalization, Other)
  Sender: FDA-Public Use
  Company Number: ID-SEATTLE GENETICS-2019SGN04447

PATIENT
  Age: 30 Year
  Sex: Male

DRUGS (1)
  1. BRENTUXIMAB VEDOTIN-MPI [Suspect]
     Active Substance: BRENTUXIMAB VEDOTIN
     Indication: HODGKIN^S DISEASE
     Dosage: 150 MG, UNK
     Route: 065
     Dates: start: 20191129

REACTIONS (6)
  - Dysgeusia [Unknown]
  - Death [Fatal]
  - Asthenia [Unknown]
  - Respiratory failure [Unknown]
  - Alopecia [Unknown]
  - Insomnia [Unknown]

NARRATIVE: CASE EVENT DATE: 20191230
